FAERS Safety Report 5360771-7 (Version None)
Quarter: 2007Q2

REPORT INFORMATION
  Report Type: 
  Country: None (occurrence: None)
  Receive Date: 20070618
  Receipt Date: 20070612
  Transmission Date: 20071010
  Serious: Yes (Death, Hospitalization, Other)
  Sender: FDA-Public Use
  Company Number: FR-BAYER-200510551BFR

PATIENT
  Age: 78 Year
  Sex: Male
  Weight: 86 kg

DRUGS (6)
  1. SORAFENIB [Suspect]
     Indication: HEPATIC NEOPLASM MALIGNANT
     Dosage: TOTAL DAILY DOSE: 800 MG  UNIT DOSE: 200 MG
     Route: 048
     Dates: start: 20050711, end: 20050822
  2. ZESTORETIC [Concomitant]
     Indication: HYPERTENSION
     Route: 048
     Dates: end: 20050904
  3. XANAX [Concomitant]
     Indication: POLYNEUROPATHY
     Route: 048
     Dates: end: 20050728
  4. DAFLON [Concomitant]
     Indication: POLYNEUROPATHY
     Route: 048
     Dates: end: 20050729
  5. LAMALINE [Concomitant]
     Indication: POLYNEUROPATHY
     Dates: end: 20050729
  6. PIROXICAM [Concomitant]
     Indication: POLYNEUROPATHY
     Route: 062
     Dates: end: 20050729

REACTIONS (4)
  - ASCITES [None]
  - CONFUSIONAL STATE [None]
  - GENERAL PHYSICAL HEALTH DETERIORATION [None]
  - HEPATIC NEOPLASM MALIGNANT [None]
